FAERS Safety Report 9704611 (Version 1)
Quarter: 2013Q4

REPORT INFORMATION
  Report Type: Spontaneous
  Country: US (occurrence: US)
  Receive Date: 20131122
  Receipt Date: 20131122
  Transmission Date: 20140711
  Serious: Yes (Hospitalization, Other)
  Sender: FDA-Public Use
  Company Number: US-PFIZER INC-2013331687

PATIENT
  Age: 43 Year
  Sex: Male

DRUGS (5)
  1. DOXORUBICIN HCL [Suspect]
     Indication: HODGKIN^S DISEASE
     Dosage: UNK
  2. VINBLASTINE [Concomitant]
     Indication: HODGKIN^S DISEASE
     Dosage: UNK
  3. BLEOMYCIN [Concomitant]
     Indication: HODGKIN^S DISEASE
     Dosage: UNK
  4. DACARBAZINE [Concomitant]
     Indication: HODGKIN^S DISEASE
     Dosage: UNK
  5. ACETAMINOPHEN W/OXYCODONE [Concomitant]
     Dosage: UNK

REACTIONS (1)
  - Clostridium difficile infection [Unknown]
